FAERS Safety Report 9537200 (Version 1)
Quarter: 2013Q3

REPORT INFORMATION
  Report Type: Spontaneous
  Country: US (occurrence: US)
  Receive Date: 20130919
  Receipt Date: 20130919
  Transmission Date: 20140515
  Serious: Yes (Other)
  Sender: FDA-Public Use
  Company Number: US-PURDUE-USA-2013-0097876

PATIENT
  Sex: Female

DRUGS (1)
  1. ZOLPIDEM TARTRATE [Suspect]
     Indication: PRODUCT USED FOR UNKNOWN INDICATION

REACTIONS (1)
  - Somnambulism [Unknown]
